FAERS Safety Report 12378540 (Version 1)
Quarter: 2016Q2

REPORT INFORMATION
  Report Type: Spontaneous
  Country: US (occurrence: US)
  Receive Date: 20160517
  Receipt Date: 20160517
  Transmission Date: 20160815
  Serious: No
  Sender: FDA-Public Use
  Company Number: ADR-2015-01338

PATIENT
  Age: 29 Year
  Sex: Female

DRUGS (1)
  1. LIORESAL [Suspect]
     Active Substance: BACLOFEN
     Dosage: 600.1MCG/DAY
     Route: 037

REACTIONS (2)
  - Feeling of relaxation [Unknown]
  - Medical device site mass [Unknown]
